FAERS Safety Report 11148881 (Version 3)
Quarter: 2015Q2

REPORT INFORMATION
  Report Type: Report from Study
  Country: TW (occurrence: TW)
  Receive Date: 20150529
  Receipt Date: 20150626
  Transmission Date: 20150821
  Serious: Yes (Hospitalization)
  Sender: FDA-Public Use
  Company Number: TW-PFIZER INC-2015171386

PATIENT
  Age: 67 Year
  Sex: Male
  Weight: 59 kg

DRUGS (4)
  1. MORPHINE [Concomitant]
     Active Substance: MORPHINE
     Indication: TUMOUR PAIN
     Dosage: UNK
     Route: 048
     Dates: start: 20150512
  2. AXITINIB [Suspect]
     Active Substance: AXITINIB
     Indication: HEPATOCELLULAR CARCINOMA
     Dosage: 5 MG, BID
     Route: 048
     Dates: start: 20150512, end: 20150517
  3. AXITINIB [Suspect]
     Active Substance: AXITINIB
     Dosage: 3 MG, BID
     Route: 048
     Dates: start: 20150520
  4. PARIET [Concomitant]
     Active Substance: RABEPRAZOLE SODIUM
     Indication: DUODENAL ULCER
     Dosage: UNK
     Route: 048
     Dates: start: 20150512

REACTIONS (1)
  - Chest pain [Recovered/Resolved]

NARRATIVE: CASE EVENT DATE: 20150517
